FAERS Safety Report 6164310-2 (Version None)
Quarter: 2009Q2

REPORT INFORMATION
  Report Type: 
  Country: None (occurrence: None)
  Receive Date: 20090422
  Receipt Date: 20090414
  Transmission Date: 20091009
  Serious: Yes (Other)
  Sender: FDA-Public Use
  Company Number: CH-PFIZER INC-2009198133

PATIENT

DRUGS (5)
  1. CELEBREX [Suspect]
     Dosage: 100 MG, 2X/DAY
     Route: 048
     Dates: start: 20080901, end: 20090207
  2. TRAMADOL HCL [Suspect]
     Dosage: 50 MG, 4X/DAY
     Route: 048
     Dates: end: 20090207
  3. DAFALGAN [Suspect]
     Dosage: 1000 MG, 3X/DAY
     Route: 048
     Dates: start: 20090207, end: 20090213
  4. NEXIUM [Concomitant]
     Dosage: UNK
     Route: 048
     Dates: start: 20090201, end: 20090213
  5. BUPRENORPHINE HYDROCHLORIDE [Concomitant]
     Dosage: UNK
     Route: 060
     Dates: start: 20090207, end: 20090212

REACTIONS (1)
  - CHOLESTATIC LIVER INJURY [None]
